FAERS Safety Report 9553827 (Version 1)
Quarter: 2013Q3

REPORT INFORMATION
  Report Type: Spontaneous
  Country: US (occurrence: None)
  Receive Date: 20130924
  Receipt Date: 20130924
  Transmission Date: 20140515
  Serious: No
  Sender: FDA-Public Use
  Company Number: None

PATIENT
  Age: 74 Year
  Sex: Female
  Weight: 79.38 kg

DRUGS (12)
  1. SULFAMETHOXAZOLE-TMP [Suspect]
     Indication: URINARY TRACT INFECTION
     Dosage: 2 TABLETS DAILY, TOTAL 20, TWICE DAILY, BY MOUTH
     Dates: start: 20130808, end: 20130817
  2. BACTRIM DS TABLETS [Suspect]
  3. PROTONIX [Concomitant]
  4. CELEBREX [Concomitant]
  5. LOMOTIL [Concomitant]
  6. XYZAL [Concomitant]
  7. LISINOPRIL [Concomitant]
  8. CHLORTHALIDONE [Concomitant]
  9. NITROGLYCERIN [Concomitant]
  10. ASPIRIN [Concomitant]
  11. TUMS [Concomitant]
  12. ALEVE [Concomitant]

REACTIONS (6)
  - Hypersensitivity [None]
  - Dehydration [None]
  - Fatigue [None]
  - Nausea [None]
  - Weight decreased [None]
  - Vomiting [None]
